FAERS Safety Report 5874911-4 (Version None)
Quarter: 2008Q3

REPORT INFORMATION
  Report Type: 
  Country: None (occurrence: None)
  Receive Date: 20080904
  Receipt Date: 20080819
  Transmission Date: 20090109
  Serious: Yes (Hospitalization)
  Sender: FDA-Public Use
  Company Number: AZAAU200800256

PATIENT
  Age: 64 Year
  Sex: Male

DRUGS (5)
  1. VIDAZA [Suspect]
     Indication: MYELODYSPLASTIC SYNDROME
     Dosage: (77 MG/M2, DAILY X7 DAYS) ,SUBCUTANEOUS
     Route: 058
     Dates: start: 20080708, end: 20080714
  2. THALIDOMIDE [Suspect]
     Indication: MYELODYSPLASTIC SYNDROME
     Dosage: (50 MG (DAILY)) ,ORAL
     Route: 048
     Dates: start: 20080708, end: 20080803
  3. SERETIDE (SERETIDE /01420901/) [Concomitant]
  4. COLOXYL (DOCUSATE SODIUM) [Concomitant]
  5. SENNA (SENNA ALEXANDRINA) [Concomitant]

REACTIONS (5)
  - ATROPHY [None]
  - BRAIN SCAN ABNORMAL [None]
  - CIRCULATORY COLLAPSE [None]
  - DISEASE PROGRESSION [None]
  - LOSS OF CONSCIOUSNESS [None]
